FAERS Safety Report 5818982-X (Version None)
Quarter: 2008Q3

REPORT INFORMATION
  Report Type: 
  Country: None (occurrence: None)
  Receive Date: 20080721
  Receipt Date: 20080721
  Transmission Date: 20090109
  Serious: Yes (Other)
  Sender: FDA-Public Use
  Company Number: None

PATIENT
  Age: 50 Year
  Sex: Male
  Weight: 66.6788 kg

DRUGS (1)
  1. OXYCONTIN [Suspect]
     Indication: COMPLEX REGIONAL PAIN SYNDROME
     Dosage: 2X80 AND 1X80 2XDAY AND 1XDAY PO
     Route: 048
     Dates: start: 20060401, end: 20080705

REACTIONS (1)
  - DRUG WITHDRAWAL SYNDROME [None]
